FAERS Safety Report 9797641 (Version 2)
Quarter: 2014Q1

REPORT INFORMATION
  Report Type: Spontaneous
  Country: US (occurrence: US)
  Receive Date: 20140106
  Receipt Date: 20140203
  Transmission Date: 20141002
  Serious: No
  Sender: FDA-Public Use
  Company Number: US-009507513-1401USA001095

PATIENT
  Sex: Female
  Weight: 63.95 kg

DRUGS (1)
  1. NUVARING [Suspect]
     Indication: CONTRACEPTION
     Dosage: UNK
     Route: 067
     Dates: start: 201309, end: 2013

REACTIONS (3)
  - Burning sensation [Recovered/Resolved]
  - Pruritus [Recovered/Resolved]
  - Drug administered to patient of inappropriate age [Unknown]
